FAERS Safety Report 15263663 (Version 1)
Quarter: 2018Q3

REPORT INFORMATION
  Report Type: Spontaneous
  Country: US (occurrence: US)
  Receive Date: 20180720
  Receipt Date: 20180720
  Transmission Date: 20181010
  Serious: Yes (Hospitalization)
  Sender: FDA-Public Use
  Company Number: None

PATIENT
  Age: 31 Year
  Sex: Male
  Weight: 89.9 kg

DRUGS (1)
  1. GABAPENTIN. [Suspect]
     Active Substance: GABAPENTIN
     Indication: PROCEDURAL PAIN
     Route: 048
     Dates: start: 20180703, end: 20180706

REACTIONS (4)
  - Diabetes mellitus inadequate control [None]
  - Fall [None]
  - Cognitive disorder [None]
  - Hypoglycaemia [None]

NARRATIVE: CASE EVENT DATE: 20180706
